FAERS Safety Report 15257433 (Version 1)
Quarter: 2018Q3

REPORT INFORMATION
  Report Type: Spontaneous
  Country: US (occurrence: US)
  Receive Date: 20180808
  Receipt Date: 20180808
  Transmission Date: 20181010
  Serious: No
  Sender: FDA-Public Use
  Company Number: US-GALDERMA-US18021958

PATIENT
  Age: 36 Year
  Sex: Female

DRUGS (7)
  1. PROACTIV MD DEEP CLEANSING FACE WASH [Concomitant]
     Active Substance: COSMETICS
     Indication: SKIN WRINKLING
     Route: 061
     Dates: start: 20180312
  2. PROACTIV GREEN TEA MOISTURIZER [Concomitant]
     Active Substance: COSMETICS
     Indication: SKIN WRINKLING
     Route: 061
     Dates: start: 20180312
  3. PROACTIV MOISTURE REPAIR [Concomitant]
     Active Substance: COSMETICS
     Indication: SKIN WRINKLING
     Route: 061
     Dates: start: 20180312
  4. PROACTIV SKIN PURIFYING MASK [Concomitant]
     Active Substance: SULFUR
     Indication: SKIN WRINKLING
     Route: 061
     Dates: start: 20180312
  5. PROACTIV EYE BRIGHTENING SERUM [Concomitant]
     Active Substance: COSMETICS
     Indication: SKIN WRINKLING
     Route: 061
     Dates: start: 20180312
  6. PROACTIV MD ADAPALENE ACNE TREATMENT [Suspect]
     Active Substance: ADAPALENE
     Indication: SKIN WRINKLING
     Dosage: 0.1%
     Route: 061
     Dates: start: 20180312
  7. PROACTIV MD DAILY OIL CONTROL SPF 30 [Suspect]
     Active Substance: AVOBENZONE\OCTISALATE\OCTOCRYLENE
     Indication: SKIN WRINKLING
     Route: 061
     Dates: start: 20180312

REACTIONS (7)
  - Dry skin [Not Recovered/Not Resolved]
  - Product use in unapproved indication [Recovered/Resolved]
  - Skin burning sensation [Not Recovered/Not Resolved]
  - Overdose [Recovered/Resolved]
  - Inappropriate schedule of drug administration [Recovered/Resolved]
  - Skin exfoliation [Not Recovered/Not Resolved]
  - Erythema [Not Recovered/Not Resolved]

NARRATIVE: CASE EVENT DATE: 20180312
